FAERS Safety Report 9797834 (Version 5)
Quarter: 2014Q2

REPORT INFORMATION
  Report Type: Spontaneous
  Country: GB (occurrence: None)
  Receive Date: 20131231
  Receipt Date: 20140414
  Transmission Date: 20141212
  Serious: Yes (Death, Other)
  Sender: FDA-Public Use
  Company Number: AUR-APL-2013-10825

PATIENT
  Age: 45 Year
  Sex: Female

DRUGS (23)
  1. CITALOPRAM [Suspect]
     Indication: ANTIDEPRESSANT THERAPY
     Dosage: (40 MG, 1 D)
     Route: 048
  2. GABAPENTIN (GABAPENTIN) [Suspect]
     Indication: ANTIDEPRESSANT THERAPY
     Dosage: 1200 MG (400 MG, 3 IN 1)
     Route: 048
  3. OXYCONTIN (OXYCODONE HYDROCHLORIDE) [Suspect]
     Indication: PAIN
     Dosage: 240 MG (120 MG, 2 IN 1 D)
     Route: 048
  4. OXYNORM (OXYCODONE HYDROCHLORIDE) (OXYCODONE HYDROCHLORIDE) [Suspect]
     Indication: PRODUCT USED FOR UNKNOWN INDICATION
     Route: 048
  5. DIAZEPAM (DIAZEPAM) [Suspect]
     Indication: PRODUCT USED FOR UNKNOWN INDICATION
     Dosage: (10 MG), UNKNOWN
  6. XARELTO (RIVAROXABAN) [Concomitant]
  7. AMITRIPTYLINE (AMITRIPTYLINE) [Concomitant]
  8. AZATHIOPRINE (AZATHIOPRINE) [Concomitant]
  9. CALCICHEW D3 (LEKOVIT CA) [Concomitant]
  10. CHLORPHENAAMINE (CHLORPHENAMINE) [Concomitant]
  11. CLENIL MODULITE (BECLOMETASONE DIPROPIONATE) [Concomitant]
  12. COLCHICINE (COLCHICINE) [Concomitant]
  13. LOPERAMIDE (LOPERAMIDE) [Concomitant]
  14. OMEPRAZOLE (OMEPRAZOLE) [Concomitant]
  15. ONDANSETRON (ONDANSETRON) [Concomitant]
  16. OPTIVE (OPTIVE) [Concomitant]
  17. OXYBUTYNIN (OXYBUTYNIN) [Concomitant]
  18. PARACETAMOL (PARACETAMOL) [Concomitant]
  19. PREDNISONE (PREDNISONE) [Concomitant]
  20. QUININE SULFATE (QUININE SULFATE) [Concomitant]
  21. REGURIN (TROSPIUM CHLORIDE) [Concomitant]
  22. VENTOLIN (SALBUTAMOL) [Concomitant]
  23. ZOPICLONE (ZOPICLONE) [Concomitant]

REACTIONS (6)
  - Respiratory failure [None]
  - Gastrointestinal stoma complication [None]
  - Drug interaction [None]
  - Wound haemorrhage [None]
  - Abdominal distension [None]
  - Accidental overdose [None]
